FAERS Safety Report 21711943 (Version 1)
Quarter: 2022Q4

REPORT INFORMATION
  Report Type: Spontaneous
  Country: IT (occurrence: IT)
  Receive Date: 20221212
  Receipt Date: 20221212
  Transmission Date: 20230113
  Serious: Yes (Other)
  Sender: FDA-Public Use
  Company Number: IT-MINISAL02-891309

PATIENT
  Age: 31 Year
  Sex: Male

DRUGS (2)
  1. TERBINAFINE [Suspect]
     Active Substance: TERBINAFINE
     Indication: Fungal infection
     Dosage: 250 MILLIGRAM, (1 UNIT? POSOLOGICA, FREQUENZA TOTALE)
     Route: 048
     Dates: start: 20220912, end: 20220912
  2. TERBINAFINE [Suspect]
     Active Substance: TERBINAFINE
     Dosage: 250 MILLIGRAM, TOTAL
     Route: 048
     Dates: start: 20220913, end: 20220913

REACTIONS (4)
  - Angioedema [Recovering/Resolving]
  - Abdominal pain upper [Recovering/Resolving]
  - Urticaria [Recovering/Resolving]
  - Pruritus [Recovering/Resolving]

NARRATIVE: CASE EVENT DATE: 20220913
